FAERS Safety Report 22108690 (Version 1)
Quarter: 2023Q1

REPORT INFORMATION
  Report Type: Report from Study
  Country: PL (occurrence: PL)
  Receive Date: 20230317
  Receipt Date: 20230317
  Transmission Date: 20230417
  Serious: Yes (Life-Threatening, Disabling, Other)
  Sender: FDA-Public Use
  Company Number: PL-GLAXOSMITHKLINE-PL2023GSK040360

PATIENT

DRUGS (2)
  1. MEPOLIZUMAB [Suspect]
     Active Substance: MEPOLIZUMAB
     Indication: Hypereosinophilic syndrome
     Dosage: UNK
     Dates: start: 20190513, end: 20230302
  2. PREDNISONE [Concomitant]
     Active Substance: PREDNISONE
     Indication: Hypereosinophilic syndrome
     Dosage: 15 MG, QD
     Route: 048
     Dates: start: 202301

REACTIONS (2)
  - Intestinal perforation [Recovered/Resolved with Sequelae]
  - Peritonitis [Recovered/Resolved with Sequelae]

NARRATIVE: CASE EVENT DATE: 20230302
